FAERS Safety Report 17959095 (Version 1)
Quarter: 2020Q2

REPORT INFORMATION
  Report Type: Spontaneous
  Country: AU (occurrence: AU)
  Receive Date: 20200629
  Receipt Date: 20200629
  Transmission Date: 20200714
  Serious: Yes (Hospitalization, Other)
  Sender: FDA-Public Use
  Company Number: AU-CASPER PHARMA LLC-2020CAS000308

PATIENT
  Age: 26 Year
  Sex: Male

DRUGS (2)
  1. PENICILLIN G BENZATHINE [Suspect]
     Active Substance: PENICILLIN G BENZATHINE
     Indication: SECONDARY SYPHILIS
     Dosage: 1.8 GRAM
     Route: 030
  2. PREDNISONE. [Concomitant]
     Active Substance: PREDNISONE
     Indication: SECONDARY SYPHILIS
     Dosage: 60 MILLIGRAM
     Route: 065

REACTIONS (1)
  - Jarisch-Herxheimer reaction [Unknown]
